FAERS Safety Report 6887837-4 (Version None)
Quarter: 2010Q3

REPORT INFORMATION
  Report Type: 
  Country: None (occurrence: None)
  Receive Date: 20100708
  Receipt Date: 20091230
  Transmission Date: 20110219
  Serious: Yes (Hospitalization, Other)
  Sender: FDA-Public Use
  Company Number: 2009316474

PATIENT
  Age: 41 Year
  Sex: Female

DRUGS (1)
  1. CHANTIX [Suspect]
     Indication: SMOKING CESSATION THERAPY
     Dates: start: 20090701, end: 20090725

REACTIONS (9)
  - AGITATION [None]
  - DISTURBANCE IN ATTENTION [None]
  - DYSARTHRIA [None]
  - HYPERHIDROSIS [None]
  - IRRITABILITY [None]
  - MEMORY IMPAIRMENT [None]
  - NAUSEA [None]
  - PARANOIA [None]
  - PSYCHOTIC DISORDER [None]
